FAERS Safety Report 9225677 (Version 9)
Quarter: 2016Q3

REPORT INFORMATION
  Report Type: Spontaneous
  Country: US (occurrence: US)
  Receive Date: 20130411
  Receipt Date: 20160719
  Transmission Date: 20161109
  Serious: Yes (Hospitalization, Other)
  Sender: FDA-Public Use
  Company Number: US-GLAXOSMITHKLINE-A1019646A

PATIENT
  Age: 55 Year
  Sex: Female
  Weight: 77.3 kg

DRUGS (11)
  1. FLOLAN [Suspect]
     Active Substance: EPOPROSTENOL SODIUM
     Indication: PULMONARY ARTERIAL HYPERTENSION
     Dosage: 37 NG/KG/MIN, CONC: 45,000 NG/ML, PUMP RATE 82 ML/DAY, VIAL STRENGTH 1.5 MG
     Route: 042
     Dates: start: 20090409
  2. FLOLAN [Suspect]
     Active Substance: EPOPROSTENOL SODIUM
     Dosage: 38 NG/KG/MIN CONTINUOUSLY
     Route: 042
  3. FLOLAN [Suspect]
     Active Substance: EPOPROSTENOL SODIUM
     Dosage: 38 NG/KG/MIN CONTINUOUSLY
     Route: 042
  4. FLOLAN [Suspect]
     Active Substance: EPOPROSTENOL SODIUM
     Dosage: 38 NG/KG/MIN CONTINUOUS
     Route: 042
  5. COUMADIN [Suspect]
     Active Substance: WARFARIN SODIUM
  6. FLOLAN [Suspect]
     Active Substance: EPOPROSTENOL SODIUM
     Dosage: 37 NG/KG/MIN
     Dates: start: 20090409
  7. FLOLAN [Suspect]
     Active Substance: EPOPROSTENOL SODIUM
     Dosage: 38 DF, UNK
  8. FLOLAN [Suspect]
     Active Substance: EPOPROSTENOL SODIUM
     Dosage: 37 NG/KG/MIN CONTINUOUSLY
  9. FLOLAN [Suspect]
     Active Substance: EPOPROSTENOL SODIUM
     Dosage: UNK
     Dates: start: 20090410
  10. WARFARIN [Concomitant]
     Active Substance: WARFARIN
  11. REVATIO [Concomitant]
     Active Substance: SILDENAFIL CITRATE

REACTIONS (14)
  - Pain in extremity [Unknown]
  - Diarrhoea [Unknown]
  - Spinal fracture [Unknown]
  - Back pain [Unknown]
  - Device leakage [Recovered/Resolved]
  - Epistaxis [Unknown]
  - Dental operation [Unknown]
  - Open fracture [Unknown]
  - Back injury [Unknown]
  - Oral surgery [Recovered/Resolved]
  - Pain in jaw [Unknown]
  - Pneumonia [Recovered/Resolved]
  - Headache [Unknown]
  - Rash [Unknown]

NARRATIVE: CASE EVENT DATE: 201505
